FAERS Safety Report 6181284-9 (Version None)
Quarter: 2009Q2

REPORT INFORMATION
  Report Type: 
  Country: None (occurrence: None)
  Receive Date: 20090506
  Receipt Date: 20090305
  Transmission Date: 20091009
  Serious: No
  Sender: FDA-Public Use
  Company Number: US-BAYER-200916567NA

PATIENT
  Sex: Male
  Weight: 91 kg

DRUGS (2)
  1. MAGNEVIST [Suspect]
     Indication: NUCLEAR MAGNETIC RESONANCE IMAGING BRAIN
     Dosage: TOTAL DAILY DOSE: 19 ML  UNIT DOSE: 20 ML
     Route: 042
     Dates: start: 20090304, end: 20090304
  2. AMITRIPTLINE HYDROCHLORIDE TAB [Concomitant]

REACTIONS (2)
  - THROAT IRRITATION [None]
  - URTICARIA [None]
